FAERS Safety Report 8398785-5 (Version None)
Quarter: 2012Q2

REPORT INFORMATION
  Report Type: 
  Country: None (occurrence: None)
  Receive Date: 20120531
  Receipt Date: 20120521
  Transmission Date: 20120825
  Serious: Yes (Hospitalization)
  Sender: FDA-Public Use
  Company Number: GB-SANOFI-AVENTIS-2012SA035959

PATIENT
  Age: 73 Year
  Sex: Male
  Weight: 93 kg

DRUGS (9)
  1. ZOLADEX [Suspect]
     Indication: PROSTATE CANCER
     Route: 058
     Dates: start: 20111206, end: 20111206
  2. ZOLEDRONIC ACID [Suspect]
     Indication: PROSTATE CANCER
     Route: 042
     Dates: end: 20120423
  3. ZOLEDRONIC ACID [Suspect]
     Route: 042
     Dates: start: 20120312, end: 20120312
  4. PREDNISOLONE [Concomitant]
     Dosage: PREDNISOLONE 5MG BID DAILY FOR 21 DAYS.
     Route: 048
     Dates: start: 20120312
  5. ADCAL-D3 [Concomitant]
     Route: 048
     Dates: start: 20120312
  6. ZOLADEX [Suspect]
     Route: 058
  7. ZOLADEX [Suspect]
     Route: 058
     Dates: end: 20120326
  8. DOCETAXEL [Suspect]
     Indication: PROSTATE CANCER
     Route: 042
     Dates: start: 20120312, end: 20120312
  9. DOCETAXEL [Suspect]
     Route: 042
     Dates: end: 20120423

REACTIONS (3)
  - HYPOXIA [None]
  - DYSPNOEA [None]
  - COUGH [None]
